FAERS Safety Report 16669505 (Version 2)
Quarter: 2020Q2

REPORT INFORMATION
  Report Type: Spontaneous
  Country: PT (occurrence: PT)
  Receive Date: 20190805
  Receipt Date: 20200420
  Transmission Date: 20200713
  Serious: Yes (Life-Threatening, Hospitalization, Other)
  Sender: FDA-Public Use
  Company Number: PT-GLAXOSMITHKLINE-PT2019GSK140953

PATIENT
  Age: 17 Year
  Sex: Female

DRUGS (10)
  1. ADRENALINE [Suspect]
     Active Substance: EPINEPHRINE
     Indication: CARDIO-RESPIRATORY ARREST
     Dosage: UNK
  2. SODIUM BICARBONATE. [Suspect]
     Active Substance: SODIUM BICARBONATE
     Dosage: 1 MEQ, Z (/KG/H)
     Route: 042
  3. DOPAMINE [Suspect]
     Active Substance: DOPAMINE HYDROCHLORIDE
     Dosage: 10 ?G/KG, Z (PER MINUTE)
  4. IBUPROFEN. [Interacting]
     Active Substance: IBUPROFEN
     Indication: PRODUCT USED FOR UNKNOWN INDICATION
     Dosage: 1.5 G, UNK
  5. ATROPINE. [Suspect]
     Active Substance: ATROPINE
     Indication: CARDIO-RESPIRATORY ARREST
     Dosage: UNK
  6. PROPAFENONE. [Suspect]
     Active Substance: PROPAFENONE
     Indication: PRODUCT USED FOR UNKNOWN INDICATION
     Dosage: 6 G, UNK
  7. ADRENALINE [Suspect]
     Active Substance: EPINEPHRINE
     Dosage: 0.15-0.3 ?G/KG/MIN
  8. ADRENALINE [Suspect]
     Active Substance: EPINEPHRINE
     Dosage: 0.6 ?G/KG, Z (PER MIN)
  9. SODIUM BICARBONATE. [Suspect]
     Active Substance: SODIUM BICARBONATE
     Indication: METABOLIC ACIDOSIS
     Dosage: UNK
  10. DOPAMINE [Suspect]
     Active Substance: DOPAMINE HYDROCHLORIDE
     Indication: HAEMODYNAMIC INSTABILITY
     Dosage: UPTO 7.5 ?G/KG, Z (PER MIN)

REACTIONS (24)
  - Sinus bradycardia [Recovered/Resolved]
  - Coma [Recovered/Resolved]
  - Acute kidney injury [Recovered/Resolved]
  - Therapy non-responder [Unknown]
  - Toxicity to various agents [Unknown]
  - Intentional overdose [Unknown]
  - Shock [Recovered/Resolved]
  - Metabolic acidosis [Recovered/Resolved]
  - Cardiac arrest [Recovered/Resolved]
  - Generalised tonic-clonic seizure [Recovered/Resolved]
  - Partial seizures [Recovered/Resolved]
  - Diastolic dysfunction [Recovered/Resolved]
  - Drug interaction [Unknown]
  - Troponin I increased [Recovered/Resolved]
  - Haemodynamic instability [Recovered/Resolved]
  - Coma scale abnormal [Recovered/Resolved]
  - Myocardial ischaemia [Recovered/Resolved]
  - Poor peripheral circulation [Recovered/Resolved]
  - Systolic dysfunction [Recovered/Resolved]
  - Seizure [Recovered/Resolved]
  - Bradycardia [Recovered/Resolved]
  - Cardio-respiratory arrest [Recovered/Resolved]
  - N-terminal prohormone brain natriuretic peptide increased [Recovered/Resolved]
  - Alanine aminotransferase increased [Recovered/Resolved]
